FAERS Safety Report 4685864-9 (Version None)
Quarter: 2005Q2

REPORT INFORMATION
  Report Type: 
  Country: None (occurrence: None)
  Receive Date: 20050607
  Receipt Date: 20050607
  Transmission Date: 20051028
  Serious: Yes (Hospitalization)
  Sender: FDA-Public Use
  Company Number: None

PATIENT
  Sex: Female
  Weight: 56.7 kg

DRUGS (7)
  1. TAXOTERE [Suspect]
     Indication: ENDOMETRIAL CANCER
     Dosage: 50 MG IVSS WEEKLY X 3
     Route: 042
     Dates: start: 20050517, end: 20050524
  2. TOPOTECAN 3.5 MG/M2 - GLAXOSMITHKLINE [Suspect]
     Indication: ENDOMETRIAL CANCER
     Dosage: 5.8 MG/M2 IVSS X 3
     Route: 042
     Dates: start: 20050517, end: 20050524
  3. FENTANYL [Concomitant]
  4. VICODIN [Concomitant]
  5. REGLAN [Concomitant]
  6. ARANESP [Concomitant]
  7. COMPAZINE [Concomitant]

REACTIONS (7)
  - ANAEMIA [None]
  - ASTHENIA [None]
  - DEHYDRATION [None]
  - DISEASE PROGRESSION [None]
  - NAUSEA [None]
  - RECTAL HAEMORRHAGE [None]
  - VOMITING [None]
